FAERS Safety Report 10676418 (Version 1)
Quarter: 2014Q4

REPORT INFORMATION
  Report Type: Spontaneous
  Country: US (occurrence: US)
  Receive Date: 20141226
  Receipt Date: 20141226
  Transmission Date: 20150529
  Serious: No
  Sender: FDA-Public Use
  Company Number: US-BAYER-2014-184428

PATIENT
  Age: 26 Year
  Sex: Female

DRUGS (1)
  1. FINACEA [Suspect]
     Active Substance: AZELAIC ACID
     Dosage: 15 %, AFTER 15 MIN DAILY

REACTIONS (3)
  - Paraesthesia [None]
  - Scar [None]
  - Application site pain [None]
